FAERS Safety Report 4341801-8 (Version None)
Quarter: 2004Q2

REPORT INFORMATION
  Report Type: 
  Country: None (occurrence: None)
  Receive Date: 20040420
  Receipt Date: 20040407
  Transmission Date: 20050107
  Serious: Yes (Hospitalization)
  Sender: FDA-Public Use
  Company Number: GB-GLAXOSMITHKLINE-B0329332A

PATIENT
  Age: 14 Year
  Sex: Female

DRUGS (3)
  1. LANVIS [Suspect]
     Route: 048
     Dates: start: 20040323, end: 20040405
  2. CYTARABINE [Concomitant]
     Route: 065
     Dates: start: 20040331, end: 20040403
  3. METHOTREXATE [Concomitant]
     Route: 037
     Dates: start: 20040330

REACTIONS (3)
  - APHASIA [None]
  - CEREBROVASCULAR ACCIDENT [None]
  - HEMIPARESIS [None]
